FAERS Safety Report 23063365 (Version 1)
Quarter: 2023Q4

REPORT INFORMATION
  Report Type: Spontaneous
  Country: US (occurrence: US)
  Receive Date: 20231013
  Receipt Date: 20231013
  Transmission Date: 20240110
  Serious: Yes (Other)
  Sender: FDA-Public Use
  Company Number: US-INCYTE CORPORATION-2023IN010612

PATIENT

DRUGS (3)
  1. OPZELURA [Suspect]
     Active Substance: RUXOLITINIB PHOSPHATE
     Indication: Vitiligo
     Dosage: 1.5 PERCENT
     Route: 061
  2. OPZELURA [Suspect]
     Active Substance: RUXOLITINIB PHOSPHATE
     Dosage: TWICE A DAY
     Route: 061
     Dates: start: 20231006
  3. AMOXICILLIN [Suspect]
     Active Substance: AMOXICILLIN
     Indication: Product used for unknown indication
     Route: 065

REACTIONS (12)
  - Clostridium difficile infection [Unknown]
  - Panic attack [Unknown]
  - Pharyngitis streptococcal [Unknown]
  - Nausea [Unknown]
  - Disturbance in attention [Unknown]
  - Dizziness [Unknown]
  - Feeling abnormal [Unknown]
  - Confusional state [Unknown]
  - Nervousness [Unknown]
  - Incorrect dosage administered [Unknown]
  - Diarrhoea [Unknown]
  - Anxiety [Unknown]
